FAERS Safety Report 24184755 (Version 1)
Quarter: 2024Q3

REPORT INFORMATION
  Report Type: Report from Study
  Country: IT (occurrence: IT)
  Receive Date: 20240807
  Receipt Date: 20240807
  Transmission Date: 20241016
  Serious: Yes (Other)
  Sender: TEVA
  Company Number: None

PATIENT
  Age: 16 Year
  Sex: Male
  Weight: 75 kg

DRUGS (8)
  1. CISPLATIN [Suspect]
     Active Substance: CISPLATIN
     Indication: Testicular embryonal carcinoma
     Dosage: CISPLATIN TEVA ITALY 45.00 MG INFUSION IN 250 ML NACL 0.9% OVER 30 MIN. ON 27, 28/03/2024,29/03/2...
     Route: 042
     Dates: start: 20240327, end: 20240511
  2. CISPLATIN [Suspect]
     Active Substance: CISPLATIN
     Indication: Testicular embryonal carcinoma
     Dosage: CISPLATIN TEVA ITALY 45.00 MG INFUSION OVER 30 MIN. ON 29/05/2024,30/05/2024, 31/05/2024 AND 01/0...
     Route: 042
     Dates: start: 20240529, end: 20240601
  3. CISPLATIN [Suspect]
     Active Substance: CISPLATIN
     Indication: Testicular embryonal carcinoma
     Dosage: CISPLATIN TEVA ITALY 45.00 MG INFUSION IN 250 ML NACL 0.9% OVER 30 MIN. ON 27, 28/03/2024,29/03/2...
     Route: 042
     Dates: start: 20240327, end: 20240511
  4. CISPLATIN [Suspect]
     Active Substance: CISPLATIN
     Indication: Testicular embryonal carcinoma
     Dosage: CISPLATIN TEVA ITALY 45.00 MG INFUSION IN 250 ML NACL 0.9% OVER 30 MIN. ON 27, 28/03/2024,29/03/2...
     Route: 042
     Dates: start: 20240327, end: 20240511
  5. CISPLATIN [Suspect]
     Active Substance: CISPLATIN
     Indication: Testicular embryonal carcinoma
     Dosage: CISPLATIN TEVA ITALY 45.00 MG INFUSION OVER 30 MIN. ON 29/05/2024,30/05/2024, 31/05/2024 AND 01/0...
     Route: 042
     Dates: start: 20240529, end: 20240601
  6. BLEOMYCIN SULFATE [Suspect]
     Active Substance: BLEOMYCIN SULFATE
     Indication: Testicular embryonal carcinoma
     Dosage: 25.00 MG INFUSION IN 60 MIN. DATE 03/28/2024, 04/18/2024, 05/09/2024, 05/30/2024
     Route: 042
     Dates: start: 20240328, end: 20240530
  7. ETOPOSIDE [Suspect]
     Active Substance: ETOPOSIDE
     Indication: Testicular embryonal carcinoma
     Dosage: 180.00 MG INFUSION OVER 60 MIN. ON 08/05/2024, 01/06/2024, ETOPOSIDE SANDOZ
     Route: 042
     Dates: start: 20240508, end: 20240601
  8. ETOPOSIDE [Suspect]
     Active Substance: ETOPOSIDE
     Indication: Testicular embryonal carcinoma
     Dosage: 180.00 MG INFUSION IN 500 ML NACL 0.9% OVER 60 MIN. ON 27/03/2024, 28/03/2024, 29/03/2024, 30/03/...
     Route: 042
     Dates: start: 20240327, end: 20240531

REACTIONS (5)
  - Neutropenia [Recovered/Resolved]
  - Alopecia [Not Recovered/Not Resolved]
  - Leukopenia [Recovered/Resolved]
  - Nausea [Recovered/Resolved]
  - Vomiting [Recovered/Resolved]

NARRATIVE: CASE EVENT DATE: 20240508
